FAERS Safety Report 4740546-X (Version None)
Quarter: 2005Q3

REPORT INFORMATION
  Report Type: 
  Country: None (occurrence: None)
  Receive Date: 20050810
  Receipt Date: 20050808
  Transmission Date: 20060218
  Serious: Yes (Life-Threatening)
  Sender: FDA-Public Use
  Company Number: PHFR2005GB02685

PATIENT
  Age: 46 Year
  Sex: Female
  Weight: 85 kg

DRUGS (3)
  1. VALSARTAN [Suspect]
     Dosage: 160MG/DAY
     Route: 048
     Dates: start: 20050417
  2. COD-LIVER OIL [Concomitant]
     Dosage: 1 TABLET/DAY
     Route: 048
  3. MALARONE [Concomitant]
     Indication: MALARIA PROPHYLAXIS
     Dosage: 1 TABLET
     Route: 048
     Dates: start: 20050224

REACTIONS (3)
  - OEDEMA [None]
  - PALPITATIONS [None]
  - PERIORBITAL OEDEMA [None]
